FAERS Safety Report 21335247 (Version 1)
Quarter: 2022Q3

REPORT INFORMATION
  Report Type: Spontaneous
  Country: US (occurrence: US)
  Receive Date: 20220915
  Receipt Date: 20220915
  Transmission Date: 20221027
  Serious: No
  Sender: FDA-Public Use
  Company Number: US-BEH-2022149372

PATIENT
  Sex: Female

DRUGS (24)
  1. HIZENTRA [Suspect]
     Active Substance: HUMAN IMMUNOGLOBULIN G
     Indication: Bone density abnormal
     Dosage: 14 GRAM, QW
     Route: 058
  2. HIZENTRA [Suspect]
     Active Substance: HUMAN IMMUNOGLOBULIN G
     Indication: Bone disorder
  3. SUCRALFATE [Concomitant]
     Active Substance: SUCRALFATE
  4. MELATONIN [Concomitant]
     Active Substance: MELATONIN
  5. VITAMINS NOS [Concomitant]
     Active Substance: VITAMINS
  6. AMOXICILLIN [Concomitant]
     Active Substance: AMOXICILLIN
  7. PREDNISOLONE ACETATE [Concomitant]
     Active Substance: PREDNISOLONE ACETATE
  8. ZAFIRLUKAST [Concomitant]
     Active Substance: ZAFIRLUKAST
  9. SERTRALINE HYDROCHLORIDE [Concomitant]
     Active Substance: SERTRALINE HYDROCHLORIDE
  10. ZAFIRLUKAST [Concomitant]
     Active Substance: ZAFIRLUKAST
  11. BREO ELLIPTA [Concomitant]
     Active Substance: FLUTICASONE FUROATE\VILANTEROL TRIFENATATE
  12. ABREVA [Concomitant]
     Active Substance: DOCOSANOL
  13. SIMVASTATIN [Concomitant]
     Active Substance: SIMVASTATIN
  14. ASPIRIN [Concomitant]
     Active Substance: ASPIRIN
  15. ATORVASTATIN [Concomitant]
     Active Substance: ATORVASTATIN
  16. BYSTOLIC [Concomitant]
     Active Substance: NEBIVOLOL HYDROCHLORIDE
  17. CALCIUM [Concomitant]
     Active Substance: CALCIUM
  18. GABAPENTIN [Concomitant]
     Active Substance: GABAPENTIN
  19. IRON [Concomitant]
     Active Substance: IRON
  20. LEVOTHYROXINE [Concomitant]
     Active Substance: LEVOTHYROXINE
  21. METFORMIN HYDROCHLORIDE [Concomitant]
     Active Substance: METFORMIN HYDROCHLORIDE
  22. MUCINEX [Concomitant]
     Active Substance: GUAIFENESIN
  23. PANTOPRAZOLE [Concomitant]
     Active Substance: PANTOPRAZOLE
  24. XOPENEX HFA [Concomitant]
     Active Substance: LEVALBUTEROL TARTRATE

REACTIONS (4)
  - Sinusitis [Unknown]
  - No adverse event [Unknown]
  - Off label use [Unknown]
  - Musculoskeletal discomfort [Unknown]
